FAERS Safety Report 5147804-8 (Version None)
Quarter: 2006Q4

REPORT INFORMATION
  Report Type: 
  Country: None (occurrence: None)
  Receive Date: 20061110
  Receipt Date: 20060907
  Transmission Date: 20070319
  Serious: Yes (Hospitalization, Other)
  Sender: FDA-Public Use
  Company Number: PHEH2006US11498

PATIENT
  Sex: Male

DRUGS (1)
  1. ZOMETA [Suspect]
     Indication: PROSTATE CANCER METASTATIC
     Route: 042

REACTIONS (8)
  - BONE DISORDER [None]
  - BONE LESION [None]
  - GINGIVAL INFECTION [None]
  - ORAL CAVITY FISTULA [None]
  - OSTEONECROSIS [None]
  - STAPHYLOCOCCAL INFECTION [None]
  - SURGERY [None]
  - TOOTH EXTRACTION [None]
